FAERS Safety Report 9253138 (Version 2)
Quarter: 2013Q2

REPORT INFORMATION
  Report Type: Spontaneous
  Country: JP (occurrence: JP)
  Receive Date: 20130424
  Receipt Date: 20130508
  Transmission Date: 20140414
  Serious: Yes (Hospitalization)
  Sender: FDA-Public Use
  Company Number: JP-GILEAD-2013-0074005

PATIENT
  Age: 73 Year
  Sex: Female

DRUGS (8)
  1. AMBRISENTAN [Suspect]
     Indication: PRODUCT USED FOR UNKNOWN INDICATION
     Dosage: 2.5MG PER DAY
     Route: 048
     Dates: start: 20130327, end: 20130402
  2. ADCIRCA [Concomitant]
     Dosage: 40MG PER DAY
     Route: 048
     Dates: start: 20130319
  3. OLMETEC [Concomitant]
     Dosage: 20 MG, QD
     Route: 048
  4. DIART [Concomitant]
     Dosage: 60 MG, QD
     Route: 048
  5. ALDACTONE A [Concomitant]
     Dosage: 25 MG, QD
     Route: 048
  6. FUROSEMIDE [Concomitant]
     Dosage: 20 MG, QD
     Route: 065
  7. CALBLOCK [Concomitant]
     Dosage: 16 MG, QD
     Route: 048
  8. THYRADIN S [Concomitant]
     Dosage: 100 ?G, QD
     Route: 048

REACTIONS (2)
  - Ascites [Recovered/Resolved]
  - Weight increased [Unknown]
